FAERS Safety Report 7900826-3 (Version None)
Quarter: 2011Q4

REPORT INFORMATION
  Report Type: 
  Country: None (occurrence: None)
  Receive Date: 20111108
  Receipt Date: 20111108
  Transmission Date: 20120403
  Serious: Yes (Death)
  Sender: FDA-Public Use
  Company Number: None

PATIENT
  Sex: Female
  Weight: 70 kg

DRUGS (1)
  1. SUNITINIB MALATE [Suspect]
     Indication: METASTATIC RENAL CELL CARCINOMA
     Dosage: 50MG
     Route: 048
     Dates: start: 20111031, end: 20111104

REACTIONS (10)
  - ABDOMINAL PAIN [None]
  - CARDIO-RESPIRATORY ARREST [None]
  - LIVER FUNCTION TEST ABNORMAL [None]
  - BLOOD URIC ACID INCREASED [None]
  - NAUSEA [None]
  - VOMITING [None]
  - BLOOD LACTIC ACID INCREASED [None]
  - RESPIRATORY FAILURE [None]
  - HYPOTENSION [None]
  - BLOOD LACTATE DEHYDROGENASE INCREASED [None]
